FAERS Safety Report 8300163-1 (Version None)
Quarter: 2012Q1

REPORT INFORMATION
  Report Type: 
  Country: None (occurrence: None)
  Receive Date: 20120323
  Receipt Date: 20100324
  Transmission Date: 20120608
  Serious: Yes (Death, Hospitalization)
  Sender: FDA-Public Use
  Company Number: PHEH2010US02110

PATIENT
  Age: 20 Year
  Sex: Female
  Weight: 40.8 kg

DRUGS (2)
  1. ANTIBIOTICS (NO INGREDIENTS/SUBSTANCES) [Concomitant]
  2. TOBI [Suspect]
     Indication: CYSTIC FIBROSIS
     Dosage: 300 MG, BID, INHALATION
     Route: 055
     Dates: start: 20090901

REACTIONS (9)
  - CYSTIC FIBROSIS [None]
  - DYSPNOEA [None]
  - CHEST PAIN [None]
  - PYREXIA [None]
  - DISEASE PROGRESSION [None]
  - CLUBBING [None]
  - CHEST DISCOMFORT [None]
  - WHEEZING [None]
  - CYANOSIS [None]
